FAERS Safety Report 9109571 (Version 1)
Quarter: 2013Q1

REPORT INFORMATION
  Report Type: Spontaneous
  Country: US (occurrence: US)
  Receive Date: 20130222
  Receipt Date: 20130222
  Transmission Date: 20140127
  Serious: No
  Sender: FDA-Public Use
  Company Number: US-TEVA-356358USA

PATIENT
  Sex: Male

DRUGS (4)
  1. TREANDA [Suspect]
     Indication: CHRONIC LYMPHOCYTIC LEUKAEMIA
     Dosage: 2 DAYS EVERY 4 WEEKS
     Route: 042
     Dates: start: 20120723
  2. CHEMO [Suspect]
     Indication: CHRONIC LYMPHOCYTIC LEUKAEMIA
     Dates: start: 20120722
  3. ALLOPURINOL [Concomitant]
     Dates: end: 201207
  4. NEUPOGEN [Concomitant]
     Dosage: WEEK AFTER TREANDA
     Dates: start: 201207

REACTIONS (2)
  - Rash erythematous [Recovered/Resolved]
  - Stomatitis [Recovered/Resolved]
